FAERS Safety Report 8589941-1 (Version None)
Quarter: 2012Q3

REPORT INFORMATION
  Report Type: 
  Country: None (occurrence: None)
  Receive Date: 20120813
  Receipt Date: 19920601
  Transmission Date: 20120928
  Serious: Yes (Hospitalization)
  Sender: FDA-Public Use
  Company Number: US-ROCHE-1099315

PATIENT
  Age: 30 Year
  Sex: Male

DRUGS (1)
  1. ACTIVASE [Suspect]
     Indication: ACUTE MYOCARDIAL INFARCTION

REACTIONS (4)
  - BLINDNESS [None]
  - HEMIANOPIA HOMONYMOUS [None]
  - PAIN [None]
  - VISION BLURRED [None]
